FAERS Safety Report 9367328 (Version 1)
Quarter: 2013Q2

REPORT INFORMATION
  Report Type: Report from Study
  Country: US (occurrence: US)
  Receive Date: 20130625
  Receipt Date: 20130625
  Transmission Date: 20140414
  Serious: No
  Sender: FDA-Public Use
  Company Number: US-009507513-1306USA010032

PATIENT
  Age: 52 Year
  Sex: Male

DRUGS (3)
  1. BOCEPREVIR [Suspect]
     Indication: CHRONIC HEPATITIS C
     Dosage: 4 DF, TID
     Dates: start: 20130614
  2. PEGASYS [Suspect]
     Indication: CHRONIC HEPATITIS C
     Dosage: 180 MICROGRAM (PROCLICK INJECTOR), QW
     Dates: start: 20130522
  3. COPEGUS [Suspect]
     Indication: CHRONIC HEPATITIS C
     Dosage: 1000 MG, QD
     Dates: start: 20130522

REACTIONS (9)
  - Hyperhidrosis [Unknown]
  - Tremor [Unknown]
  - Nasopharyngitis [Unknown]
  - Somnolence [Unknown]
  - Abdominal pain upper [Unknown]
  - Pyrexia [Unknown]
  - Pain [Unknown]
  - Fatigue [Unknown]
  - Drug dose omission [Unknown]
